FAERS Safety Report 9481402 (Version 2)
Quarter: 2013Q3

REPORT INFORMATION
  Report Type: Spontaneous
  Country: US (occurrence: US)
  Receive Date: 20130828
  Receipt Date: 20130828
  Transmission Date: 20140515
  Serious: Yes (Other)
  Sender: FDA-Public Use
  Company Number: US-AMGEN-KDL164842

PATIENT
  Age: 66 Year
  Sex: Female

DRUGS (3)
  1. ENBREL [Suspect]
     Indication: RHEUMATOID ARTHRITIS
     Dosage: 50 MG, QWK
     Route: 058
     Dates: start: 20051221
  2. LEFLUNOMIDE [Concomitant]
     Dosage: 20 MG, QD
     Dates: start: 2001
  3. METHOTREXATE [Concomitant]
     Dosage: 15 MG, QWK
     Dates: start: 2001

REACTIONS (2)
  - Blood pressure increased [Unknown]
  - Pain [Unknown]
